FAERS Safety Report 5524239-7 (Version None)
Quarter: 2007Q4

REPORT INFORMATION
  Report Type: 
  Country: None (occurrence: None)
  Receive Date: 20071121
  Receipt Date: 20071113
  Transmission Date: 20080405
  Serious: Yes (Other)
  Sender: FDA-Public Use
  Company Number: US-PFIZER INC-2007082568

PATIENT
  Sex: Female

DRUGS (8)
  1. LIPITOR [Suspect]
     Indication: BLOOD CHOLESTEROL INCREASED
     Dates: start: 20070301, end: 20070101
  2. CHANTIX [Suspect]
     Indication: SMOKING CESSATION THERAPY
     Dates: start: 20070426, end: 20070701
  3. BENICAR [Concomitant]
     Indication: HYPERTENSION
  4. METOPROLOL [Concomitant]
  5. NEXIUM [Concomitant]
  6. CENTRUM SILVER [Concomitant]
  7. MILK THISTLE [Concomitant]
  8. OMEGA 3 [Concomitant]

REACTIONS (18)
  - ANGER [None]
  - ANXIETY [None]
  - BLOOD CHOLESTEROL INCREASED [None]
  - CARDIAC DISORDER [None]
  - CORONARY ARTERY DISEASE [None]
  - DYSPEPSIA [None]
  - EXERCISE TEST ABNORMAL [None]
  - GAIT DISTURBANCE [None]
  - HAEMATURIA [None]
  - HIGH DENSITY LIPOPROTEIN DECREASED [None]
  - LOW DENSITY LIPOPROTEIN DECREASED [None]
  - LOW DENSITY LIPOPROTEIN INCREASED [None]
  - MYALGIA [None]
  - NEPHROLITHIASIS [None]
  - PAIN IN EXTREMITY [None]
  - PYURIA [None]
  - URINARY TRACT INFECTION [None]
  - WEIGHT INCREASED [None]
